FAERS Safety Report 5518283-3 (Version None)
Quarter: 2007Q4

REPORT INFORMATION
  Report Type: 
  Country: None (occurrence: None)
  Receive Date: 20071115
  Receipt Date: 20071108
  Transmission Date: 20080405
  Serious: Yes (Hospitalization)
  Sender: FDA-Public Use
  Company Number: B0495526A

PATIENT
  Age: 74 Year
  Sex: Male
  Weight: 43 kg

DRUGS (17)
  1. LAMOTRIGINE [Suspect]
     Indication: EPILEPSY
     Dates: start: 20070817, end: 20071018
  2. CARBAMAZEPINE [Suspect]
  3. TOPIRAMATE [Concomitant]
  4. KEPPRA [Concomitant]
  5. ASTRIX [Concomitant]
  6. DIGOXIN [Concomitant]
  7. ISOSORBIDE DINITRATE [Concomitant]
  8. INHIBACE [Concomitant]
  9. ALDACTONE [Concomitant]
  10. DILATREND [Concomitant]
  11. GINKGO BILOBA [Concomitant]
  12. REBAMIPIDE [Concomitant]
  13. ULCERMIN [Concomitant]
  14. ZANTAC [Concomitant]
  15. MAGNESIUM OXIDE [Concomitant]
  16. FUROSEMIDE [Concomitant]
  17. FACTIVE [Concomitant]

REACTIONS (4)
  - CARDIAC DISORDER [None]
  - CONVULSION [None]
  - DEPRESSED LEVEL OF CONSCIOUSNESS [None]
  - DRUG TOXICITY [None]
